FAERS Safety Report 14815736 (Version 1)
Quarter: 2018Q2

REPORT INFORMATION
  Report Type: Report from Study
  Country: GB (occurrence: GB)
  Receive Date: 20180426
  Receipt Date: 20180426
  Transmission Date: 20180711
  Serious: Yes (Other)
  Sender: FDA-Public Use
  Company Number: GB-GLAXOSMITHKLINE-GB2018068316

PATIENT
  Age: 31 Year
  Sex: Female

DRUGS (3)
  1. SALBUTAMOL SULPHATE [Suspect]
     Active Substance: ALBUTEROL SULFATE
     Indication: ASTHMA
     Dosage: UNK
     Route: 065
  2. GILENYA [Suspect]
     Active Substance: FINGOLIMOD HYDROCHLORIDE
     Indication: PROGRESSIVE MULTIPLE SCLEROSIS
     Dosage: UNK UNK, QD
     Route: 048
     Dates: start: 20140722, end: 20150419
  3. GILENYA [Suspect]
     Active Substance: FINGOLIMOD HYDROCHLORIDE
     Dosage: UNK, QD
     Route: 048

REACTIONS (12)
  - Stress urinary incontinence [Unknown]
  - Abnormal dreams [Unknown]
  - Asthma [Recovered/Resolved]
  - Back pain [Unknown]
  - Asthma [Unknown]
  - Urinary retention [Unknown]
  - Micturition urgency [Unknown]
  - Dysphagia [Recovered/Resolved]
  - Central nervous system lesion [Unknown]
  - Flushing [Recovered/Resolved]
  - Intervertebral disc disorder [Unknown]
  - Wheezing [Recovered/Resolved]

NARRATIVE: CASE EVENT DATE: 20160120
